FAERS Safety Report 21341407 (Version 1)
Quarter: 2022Q3

REPORT INFORMATION
  Report Type: Spontaneous
  Country: DE (occurrence: None)
  Receive Date: 20220916
  Receipt Date: 20220916
  Transmission Date: 20221027
  Serious: Yes (Other)
  Sender: FDA-Public Use
  Company Number: DE-ROCHE-3176335

PATIENT
  Age: 43 Year
  Sex: Female

DRUGS (3)
  1. OCREVUS [Suspect]
     Active Substance: OCRELIZUMAB
     Indication: Relapsing multiple sclerosis
     Dosage: FIRST INFUSION
     Route: 042
     Dates: start: 202110
  2. OCREVUS [Suspect]
     Active Substance: OCRELIZUMAB
     Dosage: SECOND INFUSION
     Route: 042
     Dates: start: 202111
  3. OCREVUS [Suspect]
     Active Substance: OCRELIZUMAB
     Dosage: THIRD INFUSION
     Route: 042
     Dates: start: 202205

REACTIONS (7)
  - Multiple sclerosis relapse [Recovering/Resolving]
  - Food allergy [Unknown]
  - Throat tightness [Recovered/Resolved]
  - SARS-CoV-2 antibody test negative [Unknown]
  - Gluten sensitivity [Unknown]
  - Dermatitis contact [Unknown]
  - Rubber sensitivity [Unknown]

NARRATIVE: CASE EVENT DATE: 20211101
